FAERS Safety Report 5060057-4 (Version None)
Quarter: 2006Q3

REPORT INFORMATION
  Report Type: 
  Country: None (occurrence: None)
  Receive Date: 20060719
  Receipt Date: 20060710
  Transmission Date: 20061208
  Serious: Yes (Other)
  Sender: FDA-Public Use
  Company Number: 200612184BCC

PATIENT
  Age: 58 Year
  Sex: Male
  Weight: 77.1115 kg

DRUGS (9)
  1. ALEVE [Suspect]
     Indication: ARTHRALGIA
     Dosage: 440 MG BID ORAL
     Route: 048
     Dates: start: 20041201
  2. EXTRA STRENGTH BAYER BACK + BODY PAIN [Suspect]
     Indication: BACK PAIN
     Dosage: 1000 MG PRN ORAL ; 2000 MG TOTAL DAILY ORAL
     Route: 048
  3. EXTRA STRENGTH BAYER BACK + BODY PAIN [Suspect]
     Indication: SCIATICA
     Dosage: 1000 MG PRN ORAL ; 2000 MG TOTAL DAILY ORAL
     Route: 048
  4. EXTRA STRENGTH BAYER BACK + BODY PAIN [Suspect]
     Indication: BACK PAIN
     Dosage: 1000 MG PRN ORAL ; 2000 MG TOTAL DAILY ORAL
     Route: 048
     Dates: start: 20060520
  5. EXTRA STRENGTH BAYER BACK + BODY PAIN [Suspect]
     Indication: SCIATICA
     Dosage: 1000 MG PRN ORAL ; 2000 MG TOTAL DAILY ORAL
     Route: 048
     Dates: start: 20060520
  6. LOW DOSE BAYER ASPIRIN (ACETYLSALICYLIC ACID) [Suspect]
     Indication: PROPHYLAXIS
     Dosage: 81 MG QD ORAL
     Route: 048
     Dates: start: 20010101
  7. ALEVE COLD AND SINUS [Suspect]
     Indication: NASOPHARYNGITIS
     Dosage: 440 MG BID ORAL
     Route: 048
     Dates: start: 20060501
  8. ADVIL COLD AND SINUS [Concomitant]
  9. CENTRUM [MINERALS NOS, VITAMINS NOS] [Concomitant]

REACTIONS (3)
  - HYPERTENSION [None]
  - NASOPHARYNGITIS [None]
  - OVERDOSE [None]
